FAERS Safety Report 7334642-0 (Version None)
Quarter: 2011Q1

REPORT INFORMATION
  Report Type: 
  Country: None (occurrence: None)
  Receive Date: 20110307
  Receipt Date: 20110223
  Transmission Date: 20110831
  Serious: Yes (Other)
  Sender: FDA-Public Use
  Company Number: US-JNJFOC-20110300677

PATIENT
  Age: 74 Year
  Sex: Female

DRUGS (2)
  1. NEOSPORIN [Suspect]
     Indication: THERMAL BURN
     Route: 061
  2. ANTIHYPERTENSIVES [Concomitant]
     Indication: HYPERTENSION
     Route: 065

REACTIONS (3)
  - APPLICATION SITE ERYTHEMA [None]
  - APPLICATION SITE INFECTION [None]
  - APPLICATION SITE SWELLING [None]
